FAERS Safety Report 13668397 (Version 9)
Quarter: 2018Q3

REPORT INFORMATION
  Report Type: Spontaneous
  Country: JP (occurrence: JP)
  Receive Date: 20170620
  Receipt Date: 20180817
  Transmission Date: 20181010
  Serious: Yes (Death, Life-Threatening, Hospitalization, Other)
  Sender: FDA-Public Use
  Company Number: JP-009507513-1706JPN001604J

PATIENT
  Age: 75 Year
  Sex: Male
  Weight: 50 kg

DRUGS (10)
  1. MAGMITT [Concomitant]
     Active Substance: MAGNESIUM OXIDE
     Dosage: 500.0 MG, TID
     Route: 048
     Dates: end: 20170611
  2. PREDONINE [Concomitant]
     Active Substance: PREDNISOLONE
     Dosage: 20 MG, QD
     Route: 048
     Dates: start: 20170601, end: 20170603
  3. TAZOPIPE [Concomitant]
     Active Substance: PIPERACILLIN SODIUM\TAZOBACTAM SODIUM
     Indication: PNEUMONIA BACTERIAL
     Dosage: 1.0 DF, TID
     Route: 042
     Dates: start: 20170605, end: 20170608
  4. PREDONINE [Concomitant]
     Active Substance: PREDNISOLONE
     Indication: ENTEROCOLITIS
     Dosage: 30.0 MG, QD
     Route: 048
     Dates: start: 20170525, end: 20170531
  5. CELECOX [Concomitant]
     Active Substance: CELECOXIB
     Dosage: 200.0 MG, BID
     Route: 048
     Dates: end: 20170516
  6. NEXIUM [Concomitant]
     Active Substance: ESOMEPRAZOLE MAGNESIUM
     Indication: PROPHYLAXIS
     Dosage: 20.0 MG, QD
     Route: 048
     Dates: end: 20170611
  7. PREDONINE [Concomitant]
     Active Substance: PREDNISOLONE
     Indication: ENTEROCOLITIS
     Dosage: 40.0 MG, QD
     Route: 051
     Dates: start: 20170515, end: 20170524
  8. OXYCONTIN [Concomitant]
     Active Substance: OXYCODONE HYDROCHLORIDE
     Dosage: 5.0 MG, TID
     Route: 048
     Dates: end: 20170519
  9. KEYTRUDA [Suspect]
     Active Substance: PEMBROLIZUMAB
     Indication: LUNG ADENOCARCINOMA
     Dosage: 200 MG, Q3W
     Route: 041
     Dates: start: 20170421, end: 20170529
  10. SOL?MELCORT [Concomitant]
     Active Substance: METHYLPREDNISOLONE SODIUM SUCCINATE
     Indication: COLITIS
     Dosage: 500.0 MG, QD
     Route: 051
     Dates: start: 20170603, end: 20170605

REACTIONS (3)
  - Pneumonia bacterial [Fatal]
  - Colitis [Recovering/Resolving]
  - Diarrhoea [Unknown]

NARRATIVE: CASE EVENT DATE: 20170512
